FAERS Safety Report 8887305 (Version 1)
Quarter: 2012Q4

REPORT INFORMATION
  Report Type: Report from Study
  Country: US (occurrence: US)
  Receive Date: 20121105
  Receipt Date: 20121105
  Transmission Date: 20130627
  Serious: Yes (Hospitalization)
  Sender: FDA-Public Use
  Company Number: US-ABBOTT-12P-163-1001537-00

PATIENT
  Age: 64 Year
  Sex: Female
  Weight: 72.64 kg

DRUGS (13)
  1. HUMIRA [Suspect]
     Indication: RHEUMATOID ARTHRITIS
     Dates: start: 201110, end: 201112
  2. HUMIRA [Suspect]
     Dates: start: 201203, end: 201204
  3. HUMIRA [Suspect]
     Dates: start: 201206
  4. CRESTOR [Concomitant]
     Indication: BLOOD CHOLESTEROL INCREASED
  5. PLAVIX [Concomitant]
     Indication: THROMBOSIS
  6. PLAVIX [Concomitant]
     Indication: THROMBOSIS PROPHYLAXIS
  7. METHOTREXATE [Concomitant]
     Indication: RHEUMATOID ARTHRITIS
  8. PROTONIX [Concomitant]
     Indication: DYSPEPSIA
  9. PROTONIX [Concomitant]
     Indication: PROPHYLAXIS
  10. ASPIRIN [Concomitant]
     Indication: CARDIAC DISORDER
  11. HYDROCHLOROTHIAZIDE [Concomitant]
     Indication: HYPERTENSION
  12. MULTIVITAMINS [Concomitant]
     Indication: VITAMIN SUPPLEMENTATION
  13. VITAMIN B [Concomitant]
     Indication: VITAMIN SUPPLEMENTATION

REACTIONS (2)
  - Pyrexia [Recovered/Resolved]
  - Pyelonephritis [Recovered/Resolved]
